FAERS Safety Report 5899118-6 (Version None)
Quarter: 2008Q3

REPORT INFORMATION
  Report Type: 
  Country: None (occurrence: None)
  Receive Date: 20080902
  Receipt Date: 20080128
  Transmission Date: 20090109
  Serious: Yes (Life-Threatening, Hospitalization)
  Sender: FDA-Public Use
  Company Number: KADN20080005

PATIENT
  Age: 15 Year
  Sex: Female

DRUGS (1)
  1. KADIAN [Suspect]

REACTIONS (4)
  - ACUTE RESPIRATORY FAILURE [None]
  - COMA [None]
  - DRUG TOXICITY [None]
  - SUICIDE ATTEMPT [None]
